FAERS Safety Report 15325926 (Version 3)
Quarter: 2018Q4

REPORT INFORMATION
  Report Type: Spontaneous
  Country: US (occurrence: US)
  Receive Date: 20180828
  Receipt Date: 20181010
  Transmission Date: 20190204
  Serious: No
  Sender: FDA-Public Use
  Company Number: US-PFIZER INC-2018344888

PATIENT
  Age: 79 Year
  Sex: Female
  Weight: 78.91 kg

DRUGS (1)
  1. LYRICA [Suspect]
     Active Substance: PREGABALIN
     Indication: NEURALGIA
     Dosage: 25 MG, 2X/DAY
     Route: 048
     Dates: end: 201808

REACTIONS (2)
  - Drug hypersensitivity [Unknown]
  - Peripheral swelling [Recovering/Resolving]
